FAERS Safety Report 15681020 (Version 5)
Quarter: 2021Q1

REPORT INFORMATION
  Report Type: Report from Study
  Country: JP (occurrence: JP)
  Receive Date: 20181203
  Receipt Date: 20210106
  Transmission Date: 20210419
  Serious: Yes (Hospitalization, Other)
  Sender: FDA-Public Use
  Company Number: JP-VIIV HEALTHCARE LIMITED-JP2016JPN100782

PATIENT
  Age: 31 Year
  Sex: Male

DRUGS (17)
  1. LENDORMIN [Concomitant]
     Active Substance: BROTIZOLAM
     Indication: INSOMNIA
     Dosage: 0.25 MG, QD
  2. RHYTHMY [Concomitant]
     Active Substance: RILMAZAFONE HYDROCHLORIDE
  3. DOLUTEGRAVIR [Suspect]
     Active Substance: DOLUTEGRAVIR
     Indication: HIV INFECTION
     Dosage: 50 MG, 1D
     Route: 048
     Dates: start: 20140621
  4. ROHYPNOL [Concomitant]
     Active Substance: FLUNITRAZEPAM
     Indication: PRURITUS
  5. TRUVADA [Suspect]
     Active Substance: EMTRICITABINE\TENOFOVIR DISOPROXIL FUMARATE
     Indication: HIV INFECTION
     Dosage: 1 DF, 1D
     Route: 048
     Dates: start: 20110121, end: 20170310
  6. LUNESTA [Concomitant]
     Active Substance: ESZOPICLONE
     Indication: INSOMNIA
     Dosage: 2 MG, QD
     Dates: start: 20161017
  7. WYPAX [Concomitant]
     Active Substance: LORAZEPAM
     Indication: DEPRESSION
     Dosage: 0.5 MG, BID
  8. MUCOSTA [Concomitant]
     Active Substance: REBAMIPIDE
     Indication: PROPHYLAXIS AGAINST GASTROINTESTINAL ULCER
     Dosage: 100 MG, TID
  9. BELSOMRA [Concomitant]
     Active Substance: SUVOREXANT
     Indication: INSOMNIA
  10. TALION (JAPAN) [Concomitant]
     Active Substance: BEPOTASTINE BESYLATE
     Indication: PRURITUS
  11. JZOLOFT [Concomitant]
     Active Substance: SERTRALINE HYDROCHLORIDE
     Indication: DEPRESSION
     Dosage: 50 MG, BID
  12. MYSLEE [Concomitant]
     Active Substance: ZOLPIDEM TARTRATE
  13. MYSER OINTMENT [Concomitant]
     Active Substance: DIFLUPREDNATE
     Dosage: UNK
     Dates: end: 20190510
  14. INFREE [Concomitant]
     Active Substance: INDOMETHACIN FARNESIL
     Indication: PRURITUS
  15. ANTEBATE OINTMENT [Concomitant]
     Active Substance: BETAMETHASONE BUTYRATE PROPIONATE
     Dosage: UNK
     Dates: start: 20190510
  16. DESCOVY [Suspect]
     Active Substance: EMTRICITABINE\TENOFOVIR ALAFENAMIDE FUMARATE
     Indication: HIV INFECTION
     Dosage: 1 DF, 1D
     Route: 048
     Dates: start: 20170311
  17. BROTIZOLAM [Concomitant]
     Active Substance: BROTIZOLAM
     Dosage: UNK

REACTIONS (5)
  - Syphilis [Recovered/Resolved]
  - Depression [Recovering/Resolving]
  - Dyslipidaemia [Not Recovered/Not Resolved]
  - Radiculopathy [Unknown]
  - Hepatic function abnormal [Not Recovered/Not Resolved]

NARRATIVE: CASE EVENT DATE: 20150417
